FAERS Safety Report 5747531-X (Version None)
Quarter: 2008Q2

REPORT INFORMATION
  Report Type: 
  Country: None (occurrence: None)
  Receive Date: 20080523
  Receipt Date: 20080509
  Transmission Date: 20081010
  Serious: Yes (Other)
  Sender: FDA-Public Use
  Company Number: US-WATSON-2008-03000

PATIENT
  Sex: Male

DRUGS (1)
  1. FORTAMET EXTENDED RELEASE (WATSON LABORATORIES) [Suspect]
     Dosage: UNK, UNKNOWN
     Route: 048

REACTIONS (2)
  - DIABETIC KETOACIDOSIS [None]
  - DRUG INEFFECTIVE [None]
